FAERS Safety Report 8376711-2 (Version None)
Quarter: 2012Q2

REPORT INFORMATION
  Report Type: 
  Country: None (occurrence: None)
  Receive Date: 20120518
  Receipt Date: 20120507
  Transmission Date: 20120825
  Serious: Yes (Hospitalization, Other)
  Sender: FDA-Public Use
  Company Number: AUR-APL-2012-02228

PATIENT
  Age: 24 Year
  Sex: Female
  Weight: 80 kg

DRUGS (9)
  1. UTROGEST (PROGESTERONE) [Concomitant]
  2. CETRIZIN (CETIRIZINE HYDROCHLORIDE) [Concomitant]
  3. EBENOL (HYDROCORTISONE ACETATE) [Concomitant]
  4. EMSER SALT [Concomitant]
  5. FOLIO  FORTE (FOLINIC ACID) [Concomitant]
  6. LEVOTHYROXINE SODIUM [Concomitant]
  7. METFORMIN HCL [Suspect]
     Indication: GLUCOSE TOLERANCE IMPAIRED
     Dosage: WEEKS 0-7, ORAL
     Route: 048
  8. APSOMOL (SALBUTAMOL) [Concomitant]
  9. KADEFUNGIN (CLOTRIMAZOLE) [Concomitant]

REACTIONS (4)
  - PREMATURE RUPTURE OF MEMBRANES [None]
  - CAESAREAN SECTION [None]
  - GESTATIONAL DIABETES [None]
  - MATERNAL EXPOSURE DURING PREGNANCY [None]
